FAERS Safety Report 19139615 (Version 1)
Quarter: 2021Q2

REPORT INFORMATION
  Report Type: Spontaneous
  Country: US (occurrence: US)
  Receive Date: 20210414
  Receipt Date: 20210414
  Transmission Date: 20210717
  Serious: Yes (Disabling)
  Sender: FDA-Public Use
  Company Number: None

PATIENT
  Age: 51 Year
  Sex: Female
  Weight: 49.5 kg

DRUGS (3)
  1. THC [Suspect]
     Active Substance: DRONABINOL
  2. METHAMPHETAMINE [Suspect]
     Active Substance: METHAMPHETAMINE
  3. SODA WITH FLAVOR ADDITIVES (UNSPECIFIED INGREDIENTS) [Suspect]
     Active Substance: UNSPECIFIED INGREDIENT
     Indication: PRODUCT USED FOR UNKNOWN INDICATION

REACTIONS (3)
  - Paraesthesia oral [None]
  - Product contamination chemical [None]
  - Hypoaesthesia oral [None]

NARRATIVE: CASE EVENT DATE: 20201022
